FAERS Safety Report 24006196 (Version 1)
Quarter: 2024Q2

REPORT INFORMATION
  Report Type: Spontaneous
  Country: US (occurrence: US)
  Receive Date: 20240624
  Receipt Date: 20240624
  Transmission Date: 20240716
  Serious: No
  Sender: FDA-Public Use
  Company Number: US-AMGEN-USASP2024122712

PATIENT
  Age: 39 Year
  Sex: Female

DRUGS (4)
  1. RITUXIMAB [Suspect]
     Active Substance: RITUXIMAB
     Indication: Interstitial lung disease
     Dosage: 375 MILLIGRAM/SQ. METER, QWK, FOR 4 WEEKS
     Route: 065
  2. RITUXIMAB [Suspect]
     Active Substance: RITUXIMAB
     Dosage: UNK, Q6MO, FOR TWO YEARS
     Route: 065
  3. Immunoglobulin [Concomitant]
     Dosage: UNK, QMO
     Route: 042
  4. AZATHIOPRINE [Concomitant]
     Active Substance: AZATHIOPRINE
     Dosage: UNK, QD
     Route: 065

REACTIONS (1)
  - Off label use [Unknown]
